FAERS Safety Report 8807331 (Version 1)
Quarter: 2012Q4

REPORT INFORMATION
  Report Type: 
  Country: US (occurrence: US)
  Receive Date: 20120925
  Receipt Date: 20120925
  Transmission Date: 20130627
  Serious: Yes (Other)
  Sender: FDA-Public Use
  Company Number: US-ROCHE-1136789

PATIENT
  Sex: Female

DRUGS (7)
  1. XELODA [Suspect]
     Indication: PRODUCT USED FOR UNKNOWN INDICATION
     Route: 065
  2. AVASTIN [Suspect]
     Indication: PRODUCT USED FOR UNKNOWN INDICATION
     Route: 065
  3. TAXOTERE [Concomitant]
  4. ADRIAMYCIN [Concomitant]
  5. CYCLOPHOSPHAMIDE [Concomitant]
  6. CARBOPLATIN [Concomitant]
  7. TAXOL [Concomitant]

REACTIONS (1)
  - Radiation pneumonitis [Unknown]
